FAERS Safety Report 7781777-4 (Version None)
Quarter: 2011Q3

REPORT INFORMATION
  Report Type: 
  Country: None (occurrence: None)
  Receive Date: 20110927
  Receipt Date: 20110926
  Transmission Date: 20111222
  Serious: Yes (Hospitalization)
  Sender: FDA-Public Use
  Company Number: US-GLAXOSMITHKLINE-A0945832A

PATIENT
  Age: 38 Year
  Sex: Male
  Weight: 180.9 kg

DRUGS (7)
  1. AMARYL [Concomitant]
  2. NORVASC [Concomitant]
  3. LIPITOR [Concomitant]
  4. AVANDIA [Suspect]
     Indication: DIABETES MELLITUS
     Dosage: 8MG PER DAY
     Route: 048
     Dates: start: 20030801, end: 20070601
  5. NEXIUM [Concomitant]
  6. BENICAR [Concomitant]
  7. COLCHICINE [Concomitant]

REACTIONS (4)
  - ACUTE CORONARY SYNDROME [None]
  - ISCHAEMIA [None]
  - CORONARY ARTERY DISEASE [None]
  - MYOCARDIAL INFARCTION [None]
